FAERS Safety Report 20848956 (Version 31)
Quarter: 2025Q3

REPORT INFORMATION
  Report Type: Report from Study
  Country: CN (occurrence: CN)
  Receive Date: 20220519
  Receipt Date: 20250909
  Transmission Date: 20251020
  Serious: Yes (Other)
  Sender: TAKEDA
  Company Number: CN-TAKEDA-2022TUS024231

PATIENT
  Age: 35 Year
  Sex: Male
  Weight: 68 kg

DRUGS (13)
  1. IXAZOMIB [Suspect]
     Active Substance: IXAZOMIB
     Indication: Plasma cell myeloma
     Dosage: 4 MILLIGRAM, 1/WEEK
     Dates: start: 20211012
  2. POMALIDOMIDE [Suspect]
     Active Substance: POMALIDOMIDE
     Indication: Plasma cell myeloma
     Dosage: 4 MILLIGRAM, QD
     Dates: start: 20211012, end: 20211031
  3. MELPHALAN [Suspect]
     Active Substance: MELPHALAN
     Indication: Chemotherapy side effect prophylaxis
     Dosage: 50 MILLIGRAM, QD
     Dates: start: 20211109, end: 20211110
  4. TOLODODEKIN ALFA [Suspect]
     Active Substance: TOLODODEKIN ALFA
     Indication: Plasma cell myeloma
     Dosage: 100 MILLIGRAM, QD
     Dates: start: 20220113, end: 20220113
  5. TOLODODEKIN ALFA [Suspect]
     Active Substance: TOLODODEKIN ALFA
     Dosage: 400 MILLIGRAM, QD
     Dates: start: 20220113, end: 20220113
  6. TOLODODEKIN ALFA [Suspect]
     Active Substance: TOLODODEKIN ALFA
     Dosage: 200 MILLIGRAM, QD
     Dates: start: 20220114, end: 20220114
  7. TOLODODEKIN ALFA [Suspect]
     Active Substance: TOLODODEKIN ALFA
     Dosage: 400 MILLIGRAM, QD
     Dates: start: 20220114, end: 20220114
  8. TOLODODEKIN ALFA [Suspect]
     Active Substance: TOLODODEKIN ALFA
     Dosage: 300 MILLIGRAM, QD
     Dates: start: 20220120, end: 20220120
  9. TOLODODEKIN ALFA [Suspect]
     Active Substance: TOLODODEKIN ALFA
     Dosage: 800 MILLIGRAM, QD
     Dates: start: 20220120, end: 20220121
  10. DEXAMETHASONE [Concomitant]
     Active Substance: DEXAMETHASONE
     Indication: Plasma cell myeloma
     Dosage: 40 MILLIGRAM, QD
     Dates: start: 20211018, end: 20211101
  11. Peters [Concomitant]
     Dosage: 0.25 GRAM, TID
     Dates: start: 20211018
  12. CALCIUM\VITAMIN D [Concomitant]
     Active Substance: CALCIUM\VITAMIN D
     Dosage: 600 MILLIGRAM, QD
     Dates: start: 20211018
  13. METHYLCOBALAMIN [Concomitant]
     Active Substance: METHYLCOBALAMIN
     Dosage: 500 MICROGRAM, TID
     Dates: start: 20211018

REACTIONS (32)
  - Sepsis [Unknown]
  - Epstein-Barr viraemia [Recovered/Resolved]
  - Thrombocytopenia [Unknown]
  - Blood creatine phosphokinase increased [Recovered/Resolved]
  - Hypoglobulinaemia [Recovered/Resolved]
  - Hypoalbuminaemia [Recovered/Resolved]
  - Hypoproteinaemia [Recovered/Resolved]
  - Lymphocyte count decreased [Not Recovered/Not Resolved]
  - White blood cell count decreased [Not Recovered/Not Resolved]
  - Anaemia [Recovered/Resolved]
  - Neutrophil count decreased [Not Recovered/Not Resolved]
  - Platelet count decreased [Recovered/Resolved]
  - Hypoglycaemia [Recovered/Resolved]
  - Abdominal pain lower [Recovered/Resolved]
  - Hypocalcaemia [Recovered/Resolved]
  - Mouth ulceration [Recovered/Resolved]
  - Laryngeal pain [Recovered/Resolved]
  - Haemorrhoids [Recovered/Resolved]
  - Nasal crusting [Recovered/Resolved]
  - Infection [Recovered/Resolved]
  - Nasal obstruction [Recovered/Resolved]
  - Hiccups [Recovered/Resolved]
  - Hyponatraemia [Recovered/Resolved]
  - Blood glucose increased [Recovered/Resolved]
  - Dyslipidaemia [Recovered/Resolved]
  - Insomnia [Not Recovered/Not Resolved]
  - Asthenia [Recovered/Resolved]
  - Pyrexia [Recovered/Resolved]
  - Decreased appetite [Recovered/Resolved]
  - Diarrhoea [Not Recovered/Not Resolved]
  - Nausea [Recovered/Resolved]
  - Off label use [Unknown]

NARRATIVE: CASE EVENT DATE: 20211108
